FAERS Safety Report 12689551 (Version 5)
Quarter: 2017Q1

REPORT INFORMATION
  Report Type: Spontaneous
  Country: CZ (occurrence: CZ)
  Receive Date: 20160826
  Receipt Date: 20170222
  Transmission Date: 20170428
  Serious: Yes (Death)
  Sender: FDA-Public Use
  Company Number: CZ-SA-2016SA153301

PATIENT
  Age: 7 Year
  Sex: Female
  Weight: 15 kg

DRUGS (2)
  1. ZAVESCA [Suspect]
     Active Substance: MIGLUSTAT
     Indication: GAUCHER^S DISEASE
     Route: 048
     Dates: start: 20160116, end: 20160802
  2. CEREZYME [Suspect]
     Active Substance: IMIGLUCERASE
     Indication: GAUCHER^S DISEASE
     Dosage: 4 AMPOULE 400 MG BW DOSE:112 UNIT(S)/KILOGRAM BODYWEIGHT
     Route: 041
     Dates: start: 20151118, end: 20160727

REACTIONS (6)
  - Multiple organ dysfunction syndrome [Fatal]
  - Respiratory failure [Fatal]
  - Disease progression [Fatal]
  - Cachexia [Fatal]
  - Cardiopulmonary failure [Fatal]
  - Pneumonia [Fatal]

NARRATIVE: CASE EVENT DATE: 20160730
